FAERS Safety Report 8140618-6 (Version None)
Quarter: 2012Q1

REPORT INFORMATION
  Report Type: 
  Country: None (occurrence: None)
  Receive Date: 20120216
  Receipt Date: 20120203
  Transmission Date: 20120608
  Serious: Yes (Hospitalization, Other)
  Sender: FDA-Public Use
  Company Number: CA-JNJFOC-20120203230

PATIENT
  Sex: Male
  Weight: 69 kg

DRUGS (3)
  1. CALCIUM AND VITAMIN D [Concomitant]
     Route: 048
  2. IMURAN [Concomitant]
     Route: 042
  3. REMICADE [Suspect]
     Indication: CROHN'S DISEASE
     Dosage: START DATE ALSO REPORTED AS 06-SEP-2011
     Route: 042
     Dates: start: 20110905, end: 20111212

REACTIONS (3)
  - INTESTINAL STENOSIS [None]
  - INTESTINAL RESECTION [None]
  - CROHN'S DISEASE [None]
